FAERS Safety Report 9781011 (Version 1)
Quarter: 2013Q4

REPORT INFORMATION
  Report Type: Spontaneous
  Country: US (occurrence: None)
  Receive Date: 20131220
  Receipt Date: 20131220
  Transmission Date: 20140711
  Serious: Yes (Hospitalization, Disabling)
  Sender: FDA-Public Use
  Company Number: 2013P1021903

PATIENT
  Age: 79 Year
  Sex: Female

DRUGS (1)
  1. AMIODARONE [Suspect]
     Indication: ATRIAL FLUTTER
     Route: 042

REACTIONS (12)
  - Paraesthesia [None]
  - Asthenia [None]
  - Lethargy [None]
  - Balance disorder [None]
  - Nervous system disorder [None]
  - Ataxia [None]
  - Dizziness [None]
  - Ventricular tachycardia [None]
  - Aspartate aminotransferase increased [None]
  - Alanine aminotransferase increased [None]
  - Eosinophilia [None]
  - Neurotoxicity [None]
